FAERS Safety Report 10441443 (Version 1)
Quarter: 2014Q3

REPORT INFORMATION
  Report Type: Spontaneous
  Country: DK (occurrence: DK)
  Receive Date: 20140909
  Receipt Date: 20140909
  Transmission Date: 20150326
  Serious: Yes (Other)
  Sender: FDA-Public Use
  Company Number: DK-PFIZER INC-2014249588

PATIENT

DRUGS (5)
  1. MISOPROSTOL. [Suspect]
     Active Substance: MISOPROSTOL
     Indication: LABOUR INDUCTION
     Dosage: DOSE: 100 MICROGRAMS. STRENGTH: 50 MICROGRAMS
     Route: 064
     Dates: start: 20130729, end: 20130729
  2. SELEXID [Concomitant]
     Active Substance: AMDINOCILLIN PIVOXIL HYDROCHLORIDE
     Dosage: UNK
     Dates: start: 2012
  3. SYNTOCINON [Concomitant]
     Active Substance: OXYTOCIN
     Indication: LABOUR INDUCTION
     Dosage: UNK
     Route: 064
     Dates: start: 20130729, end: 20130729
  4. PROCTOSEDYL [Concomitant]
     Active Substance: DIBUCAINE HYDROCHLORIDE\HYDROCORTISONE
     Dosage: UNK
     Dates: start: 201303
  5. CANESTEN [Concomitant]
     Active Substance: CLOTRIMAZOLE
     Dosage: UNK
     Dates: start: 201301

REACTIONS (2)
  - Exposure during pregnancy [Unknown]
  - Cephalhaematoma [Unknown]

NARRATIVE: CASE EVENT DATE: 20130729
